FAERS Safety Report 5026482-2 (Version None)
Quarter: 2006Q2

REPORT INFORMATION
  Report Type: 
  Country: None (occurrence: None)
  Receive Date: 20060613
  Receipt Date: 20060613
  Transmission Date: 20061013
  Serious: No
  Sender: FDA-Public Use
  Company Number: None

PATIENT
  Age: 28 Year
  Sex: Male

DRUGS (1)
  1. LIDOCAINE 2% + EPI 1: 100,000 [Suspect]
     Dosage: 1X INJ
     Dates: start: 20060421

REACTIONS (3)
  - DYSAESTHESIA [None]
  - LIP PAIN [None]
  - NERVE INJURY [None]
